FAERS Safety Report 9689535 (Version 4)
Quarter: 2014Q2

REPORT INFORMATION
  Report Type: Spontaneous
  Country: IT (occurrence: IT)
  Receive Date: 20131115
  Receipt Date: 20140422
  Transmission Date: 20141212
  Serious: Yes (Other)
  Sender: FDA-Public Use
  Company Number: PHHY2013IT128638

PATIENT
  Sex: 0
  Weight: 2.9 kg

DRUGS (4)
  1. PAROXETINE [Suspect]
     Dosage: MATERNAL DOSE: 20-40 MG DAILY
     Route: 064
  2. CLONAZEPAM [Suspect]
     Dosage: MATERNAL DOSE: 0.5 MG DAILY
     Route: 064
  3. ESCITALOPRAM [Suspect]
     Dosage: MATERNAL DOSE: 10 MG DAILY
     Route: 064
  4. LORAZEPAM [Suspect]
     Dosage: MATERNAL DOSE: 1 MG DAILY
     Route: 064

REACTIONS (7)
  - Hyporeflexia [Recovering/Resolving]
  - Slow response to stimuli [Recovering/Resolving]
  - Hypoglycaemia [Recovering/Resolving]
  - Lethargy [Recovering/Resolving]
  - Hypotonia [Recovering/Resolving]
  - Drug withdrawal syndrome neonatal [Recovering/Resolving]
  - Foetal exposure during pregnancy [Unknown]
